FAERS Safety Report 7458907-7 (Version None)
Quarter: 2011Q2

REPORT INFORMATION
  Report Type: 
  Country: None (occurrence: None)
  Receive Date: 20110426
  Receipt Date: 20110412
  Transmission Date: 20111010
  Serious: Yes (Hospitalization)
  Sender: FDA-Public Use
  Company Number: FK201100765

PATIENT
  Age: 11 Year
  Sex: Male

DRUGS (10)
  1. CYTARABINE [Suspect]
     Indication: ACUTE MYELOID LEUKAEMIA
     Dosage: SEE IMAGE
     Route: 042
  2. IDARUBICIN HYDROCHLORIDE [Suspect]
     Indication: ACUTE MYELOID LEUKAEMIA
     Dosage: 10 MG/M2, THIRD COURSE, ON DAYS 1, INTRAVENOUS (NOT OTHERWISE SPECIFIED)
     Route: 042
  3. ASPARAGINASE (ASPARAGINASE) (ASPARAGINASE) [Suspect]
     Indication: ACUTE MYELOID LEUKAEMIA
     Dosage: 600 MG/M2, INTRAVENOUS (NOT OTHERWISE SPECIFIED)
     Route: 042
  4. AMIKACIN (AMIKACINE) (AMIKACINE) [Concomitant]
  5. DAUNORUBICIN HCL [Suspect]
     Dosage: 50 MG/M2, INTRAVENOUS (NOT OTHERWISE SPECIFIED)
     Route: 042
  6. MEROPENEM (MEROPENEM) (MEROPENEM) [Concomitant]
  7. ETOPOSIDE [Suspect]
     Indication: ACUTE MYELOID LEUKAEMIA
     Dosage: 100 MG/M2, INDUCTION THERAPY, ON DAYS 1, INTRAVENOUS (NOT OTHERWISE SPECIFIED)
     Route: 042
  8. VANCOMYCIN (VANCOMYCIN) (VANCOMYCIN) [Concomitant]
  9. METHOTREXATE [Suspect]
     Indication: ACUTE MYELOID LEUKAEMIA
     Dosage: INTRATHECAL
     Route: 037
  10. HYDROCORTISONE [Suspect]
     Indication: ACUTE MYELOID LEUKAEMIA
     Dosage: INTRATHECAL
     Route: 037

REACTIONS (10)
  - ASPERGILLOSIS [None]
  - PARATYPHOID FEVER [None]
  - PYREXIA [None]
  - CATHETER SITE ERYTHEMA [None]
  - FEBRILE NEUTROPENIA [None]
  - PNEUMONIA [None]
  - ENTEROBACTER INFECTION [None]
  - ABDOMINAL PAIN [None]
  - STAPHYLOCOCCAL INFECTION [None]
  - BLOOD CULTURE POSITIVE [None]
